FAERS Safety Report 8870464 (Version 1)
Quarter: 2012Q4

REPORT INFORMATION
  Report Type: 
  Country: US (occurrence: US)
  Receive Date: 20121023
  Receipt Date: 20121023
  Transmission Date: 20130627
  Serious: No
  Sender: FDA-Public Use
  Company Number: US-AMGEN-USASP2011064445

PATIENT
  Sex: Female
  Weight: 79.37 kg

DRUGS (5)
  1. ENBREL [Suspect]
     Indication: PRODUCT USED FOR UNKNOWN INDICATION
     Dosage: 50 mg, UNK
     Route: 058
  2. NEXIUM I.V. [Concomitant]
     Dosage: 20 mg, UNK
  3. VITAMIN B6 [Concomitant]
     Dosage: 100 mg, UNK
  4. VITAMIN D /00107901/ [Concomitant]
     Dosage: 1000 UNK, UNK
  5. MAGNESIUM [Concomitant]
     Dosage: 200 mg, UNK

REACTIONS (1)
  - Nasopharyngitis [Unknown]
